FAERS Safety Report 7559336-8 (Version None)
Quarter: 2011Q2

REPORT INFORMATION
  Report Type: 
  Country: None (occurrence: None)
  Receive Date: 20110621
  Receipt Date: 20110616
  Transmission Date: 20111010
  Serious: Yes (Hospitalization, Other)
  Sender: FDA-Public Use
  Company Number: US-PFIZER INC-2010006383

PATIENT
  Sex: Female

DRUGS (2)
  1. CHANTIX [Suspect]
     Indication: SMOKING CESSATION THERAPY
     Dosage: STARTING PACK
     Dates: start: 20070301, end: 20070501
  2. CHANTIX [Suspect]
     Dosage: STARTING PACK
     Dates: start: 20080101, end: 20080201

REACTIONS (4)
  - INTENTIONAL OVERDOSE [None]
  - DEPRESSION [None]
  - MEMORY IMPAIRMENT [None]
  - SUICIDE ATTEMPT [None]
